FAERS Safety Report 17771903 (Version 1)
Quarter: 2020Q2

REPORT INFORMATION
  Report Type: Spontaneous
  Country: US (occurrence: US)
  Receive Date: 20200512
  Receipt Date: 20200512
  Transmission Date: 20200714
  Serious: No
  Sender: FDA-Public Use
  Company Number: US-SUNOVION-2020SUN001397

PATIENT
  Age: 23 Year
  Sex: Male

DRUGS (1)
  1. LATUDA [Suspect]
     Active Substance: LURASIDONE HYDROCHLORIDE
     Dosage: 70 MG, QD
     Route: 048

REACTIONS (5)
  - Depression [Unknown]
  - Therapy cessation [Unknown]
  - Off label use [Unknown]
  - Mania [Unknown]
  - Wrong technique in product usage process [Unknown]
